FAERS Safety Report 25455252 (Version 1)
Quarter: 2025Q2

REPORT INFORMATION
  Report Type: Spontaneous
  Country: DE (occurrence: DE)
  Receive Date: 20250619
  Receipt Date: 20250619
  Transmission Date: 20250717
  Serious: Yes (Other)
  Sender: BRISTOL-MYERS SQUIBB COMPANY
  Company Number: DE-BRISTOL-MYERS SQUIBB COMPANY-2025-085745

PATIENT
  Age: 57 Year
  Sex: Female

DRUGS (4)
  1. NIVOLUMAB [Suspect]
     Active Substance: NIVOLUMAB
     Indication: Non-small cell lung cancer
     Dosage: D.A. (D2, Q3W)
     Dates: start: 202402
  2. IPILIMUMAB [Suspect]
     Active Substance: IPILIMUMAB
     Indication: Non-small cell lung cancer
     Dosage: BODY WEIGHT (D2, Q6W)
     Dates: start: 202402
  3. CARBOPLATIN [Concomitant]
     Active Substance: CARBOPLATIN
     Indication: Non-small cell lung cancer
     Dates: start: 202402
  4. PEMETREXED [Concomitant]
     Active Substance: PEMETREXED
     Indication: Non-small cell lung cancer
     Dates: start: 202402

REACTIONS (11)
  - Metastases to meninges [Unknown]
  - Immune-mediated hypothyroidism [Unknown]
  - Subdural haematoma [Unknown]
  - Cerebellar syndrome [Unknown]
  - Ataxia [Unknown]
  - Eye movement disorder [Unknown]
  - Dysarthria [Unknown]
  - Encephalitis [Unknown]
  - Jugular vein thrombosis [Unknown]
  - Device related thrombosis [Unknown]
  - Brachiocephalic vein thrombosis [Unknown]

NARRATIVE: CASE EVENT DATE: 20250101
